FAERS Safety Report 23655367 (Version 1)
Quarter: 2024Q1

REPORT INFORMATION
  Report Type: Spontaneous
  Country: US (occurrence: US)
  Receive Date: 20240320
  Receipt Date: 20240320
  Transmission Date: 20240410
  Serious: No
  Sender: FDA-Public Use
  Company Number: US-GLAXOSMITHKLINE-US2023AMR172024

PATIENT

DRUGS (1)
  1. BREXAFEMME [Suspect]
     Active Substance: IBREXAFUNGERP CITRATE
     Indication: Product used for unknown indication
     Dosage: UNK
     Route: 065

REACTIONS (6)
  - Pain [Unknown]
  - Vulvovaginal pain [Unknown]
  - Vulvovaginal mycotic infection [Unknown]
  - Pruritus [Unknown]
  - Burning sensation [Unknown]
  - Therapeutic product effect decreased [Unknown]
